FAERS Safety Report 22256034 (Version 1)
Quarter: 2023Q2

REPORT INFORMATION
  Report Type: Spontaneous
  Country: CZ (occurrence: CZ)
  Receive Date: 20230426
  Receipt Date: 20230426
  Transmission Date: 20230721
  Serious: Yes (Hospitalization, Other)
  Sender: FDA-Public Use
  Company Number: CZ-FreseniusKabi-FK202304931

PATIENT
  Age: 45 Year
  Sex: Male

DRUGS (1)
  1. ADALIMUMAB [Suspect]
     Active Substance: ADALIMUMAB
     Indication: Psoriasis
     Route: 058

REACTIONS (8)
  - Paraparesis [Unknown]
  - Anal hypoaesthesia [Unknown]
  - Genital hypoaesthesia [Unknown]
  - Arthritis bacterial [Unknown]
  - Extradural abscess [Unknown]
  - Staphylococcal abscess [Unknown]
  - Cellulitis [Unknown]
  - Empyema [Unknown]
